FAERS Safety Report 13489349 (Version 1)
Quarter: 2017Q2

REPORT INFORMATION
  Report Type: Spontaneous
  Country: US (occurrence: US)
  Receive Date: 20170426
  Receipt Date: 20170426
  Transmission Date: 20170830
  Serious: No
  Sender: FDA-Public Use
  Company Number: US-ALKERMES INC.-ALK-2017-000907

PATIENT
  Age: 49 Year
  Sex: Female
  Weight: 56.24 kg

DRUGS (7)
  1. SYNTHROID [Concomitant]
     Active Substance: LEVOTHYROXINE SODIUM
     Indication: PRODUCT USED FOR UNKNOWN INDICATION
  2. MECLIZINE [Concomitant]
     Active Substance: MECLIZINE HYDROCHLORIDE
     Indication: PRODUCT USED FOR UNKNOWN INDICATION
  3. REMERON [Concomitant]
     Active Substance: MIRTAZAPINE
     Indication: PRODUCT USED FOR UNKNOWN INDICATION
  4. TOPAMAX [Concomitant]
     Active Substance: TOPIRAMATE
     Indication: PRODUCT USED FOR UNKNOWN INDICATION
  5. VIVITROL [Suspect]
     Active Substance: NALTREXONE
     Indication: POST-TRAUMATIC STRESS DISORDER
     Dosage: 380 MG, QMO
     Route: 030
  6. PROPANOLOL [Concomitant]
     Active Substance: PROPRANOLOL HYDROCHLORIDE
     Indication: PRODUCT USED FOR UNKNOWN INDICATION
  7. THORAZINE [Concomitant]
     Active Substance: CHLORPROMAZINE
     Indication: PRODUCT USED FOR UNKNOWN INDICATION

REACTIONS (15)
  - Stress [Unknown]
  - Injection site induration [Unknown]
  - Dyspepsia [Unknown]
  - Injection site reaction [Unknown]
  - Injection site pain [Unknown]
  - Drug administered at inappropriate site [Unknown]
  - Off label use [Unknown]
  - Sinusitis [Unknown]
  - Injection site mass [Unknown]
  - Injection site abscess [Unknown]
  - Hiatus hernia [Unknown]
  - Nephrolithiasis [Unknown]
  - Weight decreased [Unknown]
  - Injection site scar [Unknown]
  - Injection site inflammation [Unknown]

NARRATIVE: CASE EVENT DATE: 2017
